FAERS Safety Report 5717872-0 (Version None)
Quarter: 2008Q2

REPORT INFORMATION
  Report Type: 
  Country: None (occurrence: None)
  Receive Date: 20080425
  Receipt Date: 20080212
  Transmission Date: 20081010
  Serious: No
  Sender: FDA-Public Use
  Company Number: US-ABBOTT-08P-163-0438028-00

PATIENT
  Sex: Male
  Weight: 113.5 kg

DRUGS (6)
  1. ERYTHROMYCIN [Suspect]
     Indication: INFECTION
     Route: 048
  2. LEVOTHYROXINE SODIUM [Concomitant]
     Indication: HYPOTHYROIDISM
     Route: 048
  3. INSULIN GLARGINE [Concomitant]
     Indication: DIABETES MELLITUS
     Route: 058
  4. INSULIN LISPRO [Concomitant]
     Indication: DIABETES MELLITUS
     Route: 058
  5. GALENIC /BENAZEPRIL/HYDROCHLOROTHIAZIDE/ [Concomitant]
     Indication: HYPERTENSION
     Route: 048
  6. ESCITALOPRAM OXALATE [Concomitant]
     Indication: DRUG USE FOR UNKNOWN INDICATION
     Route: 048

REACTIONS (1)
  - ABDOMINAL DISCOMFORT [None]
